FAERS Safety Report 10931039 (Version 1)
Quarter: 2015Q1

REPORT INFORMATION
  Report Type: Other
  Country: US (occurrence: US)
  Receive Date: 20150319
  Receipt Date: 20150319
  Transmission Date: 20150721
  Serious: Yes (Hospitalization, Other)
  Sender: FDA-Public Use
  Company Number: US-GSKPPD-2014GSK002261

PATIENT
  Age: 47 Year
  Sex: Female
  Weight: 98.97 kg

DRUGS (5)
  1. MEXILETINE [Concomitant]
     Active Substance: MEXILETINE
  2. ZAROXOLYN [Concomitant]
     Active Substance: METOLAZONE
  3. AVANDIA [Suspect]
     Active Substance: ROSIGLITAZONE MALEATE
     Indication: DIABETES MELLITUS
     Route: 048
     Dates: start: 2003, end: 2004
  4. COREG [Concomitant]
     Active Substance: CARVEDILOL
     Route: 048
  5. LANOXIN [Concomitant]
     Active Substance: DIGOXIN

REACTIONS (1)
  - Cardiac failure congestive [Recovered/Resolved]

NARRATIVE: CASE EVENT DATE: 20040604
